FAERS Safety Report 4838307-6 (Version None)
Quarter: 2005Q4

REPORT INFORMATION
  Report Type: 
  Country: None (occurrence: None)
  Receive Date: 20051123
  Receipt Date: 20051114
  Transmission Date: 20060501
  Serious: Yes (Hospitalization)
  Sender: FDA-Public Use
  Company Number: 12866

PATIENT
  Age: 58 Year
  Sex: Male

DRUGS (10)
  1. AMIODARONE [Suspect]
     Indication: SUPRAVENTRICULAR TACHYCARDIA
     Dosage: 1.2 G DAILY IV
     Route: 042
  2. AMIODARONE [Suspect]
     Indication: SUPRAVENTRICULAR TACHYCARDIA
     Dosage: 200 MG PO
     Route: 048
  3. SIMVASTATIN [Suspect]
     Dosage: 40 MG DAILY
  4. CLARITHROMYCIN [Suspect]
     Indication: LOWER RESPIRATORY TRACT INFECTION
     Dosage: 1 G DAILY PO
     Route: 048
  5. ASPIRIN [Concomitant]
  6. AMLODIPINE [Concomitant]
  7. FERROUS SULFATE TAB [Concomitant]
  8. LANSOPRAZOLE [Concomitant]
  9. ADENOSINE [Concomitant]
  10. CEFTRIAXONE [Concomitant]

REACTIONS (5)
  - DRUG INTERACTION [None]
  - IMPAIRED HEALING [None]
  - MYOSITIS [None]
  - PLEURAL EFFUSION [None]
  - PULMONARY EMBOLISM [None]
